FAERS Safety Report 24168797 (Version 1)
Quarter: 2024Q3

REPORT INFORMATION
  Report Type: Spontaneous
  Country: US (occurrence: None)
  Receive Date: 20240802
  Receipt Date: 20240802
  Transmission Date: 20241016
  Serious: No
  Sender: Public
  Company Number: None

PATIENT
  Age: 70 Year
  Sex: Female

DRUGS (1)
  1. OTEZLA [Suspect]
     Active Substance: APREMILAST
     Indication: Psoriasis
     Dosage: FREQUENCY : TWICE A DAY;?
     Route: 048
     Dates: start: 202407

REACTIONS (6)
  - Cystitis [None]
  - COVID-19 [None]
  - Oropharyngeal pain [None]
  - Sinusitis [None]
  - Asthma [None]
  - Upper respiratory tract infection [None]
